FAERS Safety Report 8949580 (Version 1)
Quarter: 2012Q4

REPORT INFORMATION
  Report Type: 
  Country: US (occurrence: US)
  Receive Date: 20121206
  Receipt Date: 20121206
  Transmission Date: 20130627
  Serious: Yes (Hospitalization)
  Sender: FDA-Public Use
  Company Number: US-FRI-1000040432

PATIENT
  Age: 66 Year
  Sex: Male
  Weight: 75.2 kg

DRUGS (6)
  1. VIIBRYD [Suspect]
     Indication: DEPRESSION
     Dosage: 10 mg
     Route: 048
     Dates: start: 20121023, end: 20121110
  2. VIIBRYD [Suspect]
     Indication: PARANOIA
  3. ACTOS/METFORMIN [Concomitant]
     Indication: DIABETES MELLITUS
     Dosage: 15 mg/850 mg
  4. LIPITOR [Concomitant]
     Dosage: 40 mg
  5. PREDNISONE [Concomitant]
  6. ONGLYZA [Concomitant]
     Indication: DIABETES MELLITUS
     Dosage: 2.5 mg

REACTIONS (1)
  - Bipolar I disorder [Recovered/Resolved]
